FAERS Safety Report 8365128-2 (Version None)
Quarter: 2012Q2

REPORT INFORMATION
  Report Type: 
  Country: None (occurrence: None)
  Receive Date: 20120516
  Receipt Date: 20120511
  Transmission Date: 20120825
  Serious: No
  Sender: FDA-Public Use
  Company Number: US-B.I. PHARMACEUTICALS,INC./RIDGEFIELD-2012-BP-09311BP

PATIENT
  Sex: Female

DRUGS (4)
  1. METOPROLOL TARTRATE [Concomitant]
     Indication: HYPERTENSION
     Dosage: 100 MG
     Route: 048
  2. TRADJENTA [Suspect]
     Indication: TYPE 2 DIABETES MELLITUS
     Dosage: 5 MG
     Route: 048
     Dates: start: 20120101
  3. SIMVASTATIN [Concomitant]
     Dosage: 40 MG
     Route: 048
     Dates: start: 20080101
  4. ISOSORBIDE DINITRATE [Concomitant]
     Indication: HYPERTENSION
     Dosage: 30 MG
     Route: 048

REACTIONS (4)
  - LOSS OF CONSCIOUSNESS [None]
  - HYPOGLYCAEMIA [None]
  - BLOOD GLUCOSE INCREASED [None]
  - WEIGHT DECREASED [None]
